FAERS Safety Report 19661255 (Version 2)
Quarter: 2021Q3

REPORT INFORMATION
  Report Type: Spontaneous
  Country: CR (occurrence: CR)
  Receive Date: 20210805
  Receipt Date: 20210813
  Transmission Date: 20211014
  Serious: Yes (Hospitalization, Other)
  Sender: FDA-Public Use
  Company Number: CR-PFIZER INC-202100986160

PATIENT
  Age: 61 Year
  Sex: Male

DRUGS (1)
  1. LIPITOR [Suspect]
     Active Substance: ATORVASTATIN CALCIUM
     Dosage: 80 MG, DAILY (1 TABLET DAILY)
     Route: 048
     Dates: start: 2019

REACTIONS (6)
  - Cardiac disorder [Unknown]
  - Memory impairment [Unknown]
  - Gait disturbance [Unknown]
  - Myocardial infarction [Unknown]
  - Drug ineffective [Unknown]
  - Ischaemic neuropathy [Unknown]

NARRATIVE: CASE EVENT DATE: 202107
